FAERS Safety Report 23754250 (Version 1)
Quarter: 2024Q2

REPORT INFORMATION
  Report Type: Report from Study
  Country: US (occurrence: US)
  Receive Date: 20240418
  Receipt Date: 20240418
  Transmission Date: 20240715
  Serious: Yes (Other)
  Sender: FDA-Public Use
  Company Number: US-JNJFOC-20240424188

PATIENT

DRUGS (2)
  1. SPRAVATO [Suspect]
     Active Substance: ESKETAMINE
     Indication: Product used for unknown indication
  2. SPRAVATO [Suspect]
     Active Substance: ESKETAMINE
     Dates: start: 20240401

REACTIONS (5)
  - Rib fracture [Unknown]
  - Tooth fracture [Unknown]
  - Fall [Unknown]
  - Euphoric mood [Unknown]
  - Autoscopy [Unknown]
